FAERS Safety Report 5590841-X (Version None)
Quarter: 2008Q1

REPORT INFORMATION
  Report Type: 
  Country: None (occurrence: None)
  Receive Date: 20080110
  Receipt Date: 20071226
  Transmission Date: 20080703
  Serious: Yes (Other)
  Sender: FDA-Public Use
  Company Number: DSU-2007-01037

PATIENT
  Age: 76 Year
  Sex: Male
  Weight: 66 kg

DRUGS (3)
  1. OLMESARTAN MEDOXOMIL AND HYDROCHLOROTHIZIDE [Suspect]
     Indication: HYPERTENSION
     Dosage: 40/12.5 MG (QD), PER ORAL
     Route: 048
     Dates: start: 20071220, end: 20071224
  2. HYDROCHLOROTHIAZIDE [Concomitant]
  3. ATENOLOL [Concomitant]

REACTIONS (2)
  - GAIT DISTURBANCE [None]
  - VISUAL DISTURBANCE [None]
